FAERS Safety Report 9661527 (Version 2)
Quarter: 2013Q4

REPORT INFORMATION
  Report Type: Spontaneous
  Country: US (occurrence: US)
  Receive Date: 20131031
  Receipt Date: 20131031
  Transmission Date: 20140711
  Serious: No
  Sender: FDA-Public Use
  Company Number: US-PURDUE-USA-2010-0054575

PATIENT
  Age: 49 Year
  Sex: Male
  Weight: 121.9 kg

DRUGS (1)
  1. OXYCONTIN (NDA 22-272) [Suspect]
     Indication: ANALGESIC THERAPY
     Dosage: 80 MG, Q4H
     Dates: end: 20101018

REACTIONS (2)
  - Medication residue present [Unknown]
  - Drug effect decreased [Unknown]
